FAERS Safety Report 6029337-X (Version None)
Quarter: 2009Q1

REPORT INFORMATION
  Report Type: 
  Country: None (occurrence: None)
  Receive Date: 20090102
  Receipt Date: 20081223
  Transmission Date: 20090719
  Serious: Yes (Hospitalization)
  Sender: FDA-Public Use
  Company Number: 2008-04589

PATIENT
  Age: 44 Year
  Sex: Female
  Weight: 85 kg

DRUGS (10)
  1. VELCADE [Suspect]
     Indication: AMYLOIDOSIS
     Dosage: 1.3 MG/M2;
     Dates: start: 20080917, end: 20081101
  2. DEXAMETHASONE TAB [Suspect]
     Indication: AMYLOIDOSIS
     Dosage: 20 MG,
     Dates: start: 20080917, end: 20081102
  3. MELPHALAN(MELPHALAN) VIAL [Suspect]
     Indication: AMYLOIDOSIS
     Dosage: 100 MG/M2; INTRAVENOUS
     Route: 042
     Dates: start: 20080711, end: 20080712
  4. ACYCLOVIR [Concomitant]
  5. LASIX [Concomitant]
  6. POTASSIUM CHLORIDE [Concomitant]
  7. FLUCONAZOLE [Concomitant]
  8. BACTRIM DS [Concomitant]
  9. VITAMIN B6 [Concomitant]
  10. PREVACID [Concomitant]

REACTIONS (3)
  - DIARRHOEA [None]
  - PNEUMONIA [None]
  - RESPIRATORY SYNCYTIAL VIRUS INFECTION [None]
